FAERS Safety Report 10728746 (Version 1)
Quarter: 2015Q1

REPORT INFORMATION
  Report Type: Spontaneous
  Country: US (occurrence: None)
  Receive Date: 20150120
  Receipt Date: 20150120
  Transmission Date: 20150721
  Serious: Yes (Other)
  Sender: FDA-Public Use
  Company Number: None

PATIENT
  Age: 80 Year
  Sex: Male
  Weight: 83.92 kg

DRUGS (4)
  1. FOLIC ACID. [Concomitant]
     Active Substance: FOLIC ACID
  2. LOVASTATIN. [Concomitant]
     Active Substance: LOVASTATIN
  3. TARCEVA [Suspect]
     Active Substance: ERLOTINIB HYDROCHLORIDE
     Indication: LUNG NEOPLASM MALIGNANT
     Dosage: 1
     Route: 048
     Dates: start: 20141205, end: 20150105
  4. FAMOTIDINE. [Concomitant]
     Active Substance: FAMOTIDINE

REACTIONS (3)
  - Aphasia [None]
  - Malaise [None]
  - Embolic stroke [None]

NARRATIVE: CASE EVENT DATE: 20150105
